FAERS Safety Report 12702885 (Version 2)
Quarter: 2016Q3

REPORT INFORMATION
  Report Type: Spontaneous
  Country: JP (occurrence: JP)
  Receive Date: 20160831
  Receipt Date: 20160916
  Transmission Date: 20161109
  Serious: Yes (Other)
  Sender: FDA-Public Use
  Company Number: JP-PFIZER INC-2016400536

PATIENT
  Age: 19 Year

DRUGS (1)
  1. SUTENT [Suspect]
     Active Substance: SUNITINIB MALATE
     Indication: GASTROINTESTINAL STROMAL TUMOUR
     Dosage: 50 MG, CYCLIC (FOUR-WEEK TREATMENT PERIOD FOLLOWED BY A TWO-WEEK DRUG REST)
     Route: 048

REACTIONS (1)
  - Bone marrow failure [Recovered/Resolved]
